FAERS Safety Report 7947216-5 (Version None)
Quarter: 2011Q4

REPORT INFORMATION
  Report Type: 
  Country: None (occurrence: None)
  Receive Date: 20111129
  Receipt Date: 20111128
  Transmission Date: 20120403
  Serious: Yes (Other)
  Sender: FDA-Public Use
  Company Number: SG-BAYER-2011-114078

PATIENT
  Age: 77 Year
  Sex: Female

DRUGS (2)
  1. CEDAX [Suspect]
     Route: 048
  2. MOXIFLOXACIN [Suspect]

REACTIONS (1)
  - RHONCHI [None]
